FAERS Safety Report 11062933 (Version 1)
Quarter: 2015Q2

REPORT INFORMATION
  Report Type: Report from Study
  Country: US (occurrence: US)
  Receive Date: 20150424
  Receipt Date: 20150424
  Transmission Date: 20150821
  Serious: Yes (Hospitalization, Other)
  Sender: FDA-Public Use
  Company Number: US-BRISTOL-MYERS SQUIBB COMPANY-16412587

PATIENT
  Age: 72 Year
  Sex: Male

DRUGS (18)
  1. ECOTRIN [Concomitant]
     Active Substance: ASPIRIN
     Dosage: 81MG EC TAB
     Route: 048
     Dates: start: 20120217, end: 20120219
  2. POTASSIUM CHLORIDE. [Concomitant]
     Active Substance: POTASSIUM CHLORIDE
     Dosage: 20 MEQ, PRN
     Dates: start: 20120217, end: 20120219
  3. DELTASONE [Concomitant]
     Active Substance: PREDNISONE
     Dosage: TAB
     Route: 048
  4. VICODIN [Concomitant]
     Active Substance: ACETAMINOPHEN\HYDROCODONE BITARTRATE
     Dosage: TABS
     Route: 048
     Dates: start: 20120217, end: 20120219
  5. PEPCID [Concomitant]
     Active Substance: FAMOTIDINE
     Dosage: 20 MG, BID
     Route: 042
     Dates: start: 20120217, end: 20120219
  6. DILAUDID [Concomitant]
     Active Substance: HYDROMORPHONE HYDROCHLORIDE
     Dosage: 4 MG, UNK
     Route: 042
     Dates: start: 20120217, end: 20120217
  7. TYLENOL [Concomitant]
     Active Substance: ACETAMINOPHEN
     Dosage: TABS
     Route: 048
     Dates: start: 20120217, end: 20120219
  8. MILK OF MAGNESIA [Concomitant]
     Active Substance: MAGNESIUM HYDROXIDE
     Dosage: 30 ML, PRN
     Route: 048
     Dates: start: 20120217, end: 20120219
  9. RESTORIL [Concomitant]
     Active Substance: TEMAZEPAM
     Dosage: 15 MG, PRN
     Route: 048
     Dates: start: 20120217, end: 20120219
  10. DULCOLAX [Concomitant]
     Active Substance: BISACODYL OR DOCUSATE SODIUM
     Dosage: 10 MG, PRN
     Route: 054
     Dates: start: 20120217, end: 20120219
  11. THERAGRAN [Concomitant]
     Active Substance: VITAMINS
     Dosage: 1DF=1TAB
     Route: 048
  12. DELTASONE [Concomitant]
     Active Substance: PREDNISONE
     Dosage: TABS
     Route: 048
     Dates: start: 20120217, end: 20120218
  13. IPILIMUMAB [Suspect]
     Active Substance: IPILIMUMAB
     Indication: PROSTATE CANCER
     Dosage: 20DEC11-20DEC11  10JAN12-10JAN2012:153CC  01FEB12-01FEB12:156CC  COURSES:1
     Route: 042
     Dates: start: 20111220, end: 20120201
  14. OSCAL [Concomitant]
     Active Substance: CALCIUM CARBONATE
     Dosage: 1TAB
     Route: 048
     Dates: start: 20120217, end: 20120219
  15. ZOFRAN [Concomitant]
     Active Substance: ONDANSETRON HYDROCHLORIDE
     Dosage: 4 MG, UNK
     Route: 042
     Dates: start: 20120217, end: 20120217
  16. OMNIPAQUE [Concomitant]
     Active Substance: IOHEXOL
     Dosage: INJECTION
     Dates: start: 20120217, end: 20120217
  17. PHENERGAN [Concomitant]
     Active Substance: PROMETHAZINE HYDROCHLORIDE
     Dosage: 25 MG, UNK
     Route: 042
     Dates: start: 20120217, end: 20120217
  18. COLACE [Concomitant]
     Active Substance: DOCUSATE SODIUM
     Dosage: CAPS
     Route: 048
     Dates: start: 20120217, end: 20120219

REACTIONS (2)
  - Hyponatraemia [Recovered/Resolved]
  - Colitis [Recovered/Resolved]

NARRATIVE: CASE EVENT DATE: 20120217
